FAERS Safety Report 11492209 (Version 2)
Quarter: 2015Q4

REPORT INFORMATION
  Report Type: Spontaneous
  Country: US (occurrence: US)
  Receive Date: 20150910
  Receipt Date: 20151030
  Transmission Date: 20160304
  Serious: No
  Sender: FDA-Public Use
  Company Number: US-PFIZER INC-2015294109

PATIENT
  Age: 40 Year
  Sex: Male

DRUGS (20)
  1. LIPITOR [Concomitant]
     Active Substance: ATORVASTATIN CALCIUM
     Dosage: 20 MG, UNK
  2. OXYCODONE AND ACETAMINOPHEN [Concomitant]
     Active Substance: ACETAMINOPHEN\OXYCODONE\OXYCODONE HYDROCHLORIDE
     Dosage: OXYCODONE-5MG, ACETAMINOPHEN: 325MG, AS NEEDED
  3. GABAPENTIN. [Suspect]
     Active Substance: GABAPENTIN
     Indication: NEUROPATHY PERIPHERAL
     Dosage: INCREASED DOSE AT NIGHT TO 900MG
  4. METOCLOPRAMIDE. [Concomitant]
     Active Substance: METOCLOPRAMIDE
     Dosage: 10 MG, AS NEEDED
  5. METOLAZONE. [Concomitant]
     Active Substance: METOLAZONE
     Dosage: 2.5 MG, AS NEEDED
  6. ATENOLOL. [Concomitant]
     Active Substance: ATENOLOL
     Dosage: 25 MG, UNK
  7. ASPIRIN. [Concomitant]
     Active Substance: ASPIRIN
     Dosage: 80 MG, UNK
  8. FUROSEMIDE. [Concomitant]
     Active Substance: FUROSEMIDE
     Dosage: 40 MG, 1 IN THE MORNING AND 1 IN THE AFTERNOON
  9. MAGNESIUM OXIDE. [Concomitant]
     Active Substance: MAGNESIUM OXIDE
     Dosage: 400 MG, 2X/DAY (1 IN THE MORNING AND 1 IN THE EVENING)
  10. WARFARIN SODIUM. [Concomitant]
     Active Substance: WARFARIN SODIUM
     Dosage: 7.5 MG, (EVERY EVENING)
  11. AMIDARONE [Concomitant]
     Active Substance: AMIODARONE
     Dosage: 100 MG, ALTERNATE DAY (TUESDAY, THURSDAY, SATURDAY AND SUNDAY)
  12. LISINOPRIL. [Concomitant]
     Active Substance: LISINOPRIL
     Dosage: 40 MG, 1X/DAY (1 IN THE MORNING)
  13. NITROSTAT [Concomitant]
     Active Substance: NITROGLYCERIN
     Dosage: 0.4 MG, AS NEEDED
  14. GABAPENTIN. [Suspect]
     Active Substance: GABAPENTIN
     Indication: DIABETIC NEUROPATHY
     Dosage: 600 MG, 3X/DAY (MORNING, AFTERNOON AND BEDTIME)
     Dates: start: 1991
  15. AMIDARONE [Concomitant]
     Active Substance: AMIODARONE
     Dosage: 200 MG,(1 MONDAY, WEDNESDAY AND FRIDAY)
  16. OMEPRAZOLE. [Concomitant]
     Active Substance: OMEPRAZOLE
     Dosage: 20 MG, AS NEEDED
  17. WARFARIN SODIUM. [Concomitant]
     Active Substance: WARFARIN SODIUM
     Dosage: 10 MG, (ON TUESDAY)
  18. POTASSIUM CHLORIDE. [Concomitant]
     Active Substance: POTASSIUM CHLORIDE
     Dosage: 20 MEQ, (3 IN THE MORNING, 4 AFTERNOON AND 3 IN THE EVENING)
  19. STOOL SOFTENER [Concomitant]
     Active Substance: DOCUSATE CALCIUM
     Dosage: 10 MG, AS NEEDED
  20. LANTUS [Concomitant]
     Active Substance: INSULIN GLARGINE
     Dosage: UNITS AS NEEDED - IN THE MORNING AND AT NIGHT

REACTIONS (4)
  - Drug ineffective [Not Recovered/Not Resolved]
  - Dizziness [Recovered/Resolved]
  - Discomfort [Not Recovered/Not Resolved]
  - Paraesthesia [Not Recovered/Not Resolved]

NARRATIVE: CASE EVENT DATE: 1990
